FAERS Safety Report 7370723-3 (Version None)
Quarter: 2011Q1

REPORT INFORMATION
  Report Type: 
  Country: None (occurrence: None)
  Receive Date: 20110323
  Receipt Date: 20110227
  Transmission Date: 20110831
  Serious: No
  Sender: FDA-Public Use
  Company Number: US-BAYER-201022395BCC

PATIENT
  Sex: Female
  Weight: 72.727 kg

DRUGS (3)
  1. LEXAPRO [Concomitant]
  2. ASPIRIN [Suspect]
     Indication: HEADACHE
     Route: 048
  3. ASPIRIN [Suspect]

REACTIONS (3)
  - ARTHRALGIA [None]
  - URTICARIA [None]
  - HYPERSENSITIVITY [None]
